FAERS Safety Report 21043883 (Version 2)
Quarter: 2022Q4

REPORT INFORMATION
  Report Type: Report from Study
  Country: CA (occurrence: CA)
  Receive Date: 20220705
  Receipt Date: 20221108
  Transmission Date: 20230112
  Serious: Yes (Hospitalization, Other)
  Sender: FDA-Public Use
  Company Number: CA-BRISTOL-MYERS SQUIBB COMPANY-2022-012976

PATIENT
  Age: 79 Year
  Sex: Female

DRUGS (1)
  1. REBLOZYL [Suspect]
     Active Substance: LUSPATERCEPT-AAMT
     Indication: Myelodysplastic syndrome
     Dosage: FREQUENCY- 1/3 WEEKS
     Route: 058
     Dates: start: 20210928, end: 20220621

REACTIONS (3)
  - Hip fracture [Unknown]
  - Malaise [Unknown]
  - Musculoskeletal pain [Unknown]
